FAERS Safety Report 10882059 (Version 1)
Quarter: 2015Q1

REPORT INFORMATION
  Report Type: Spontaneous
  Country: US (occurrence: None)
  Receive Date: 20150225
  Receipt Date: 20150225
  Transmission Date: 20150721
  Serious: No
  Sender: FDA-Public Use
  Company Number: None

PATIENT
  Age: 8 Year
  Sex: Female
  Weight: 34.02 kg

DRUGS (5)
  1. SENNA [Concomitant]
     Active Substance: SENNA LEAF\SENNOSIDES\SENNOSIDES A AND B
  2. NEBULIZER [Concomitant]
     Active Substance: UNSPECIFIED INGREDIENT
  3. MIRALAX [Suspect]
     Active Substance: POLYETHYLENE GLYCOL 3350
     Indication: CONSTIPATION
     Dosage: 2 CAPS A DAY
     Route: 048
     Dates: start: 20080101, end: 20130201
  4. AMITIZA [Concomitant]
     Active Substance: LUBIPROSTONE
  5. DULCOLAX LIQUID COMPOUND [Concomitant]

REACTIONS (9)
  - Migraine [None]
  - Anxiety [None]
  - Abdominal distension [None]
  - Headache [None]
  - Nausea [None]
  - Skin discolouration [None]
  - Tic [None]
  - Nervousness [None]
  - Drug ineffective [None]

NARRATIVE: CASE EVENT DATE: 20131111
